FAERS Safety Report 15237940 (Version 1)
Quarter: 2018Q3

REPORT INFORMATION
  Report Type: Spontaneous
  Country: US (occurrence: US)
  Receive Date: 20180710
  Receipt Date: 20180710
  Transmission Date: 20181010
  Serious: Yes (Life-Threatening, Disabling, Other)
  Sender: FDA-Public Use
  Company Number: None

PATIENT
  Age: 69 Year
  Sex: Female
  Weight: 81 kg

DRUGS (14)
  1. ATORVASTATIN_LIPITOR [Suspect]
     Active Substance: ATORVASTATIN
     Indication: BLOOD CHOLESTEROL INCREASED
     Route: 048
     Dates: start: 20171021, end: 20180710
  2. PLAVIX [Concomitant]
     Active Substance: CLOPIDOGREL BISULFATE
  3. IRBESARTAN. [Concomitant]
     Active Substance: IRBESARTAN
  4. VITAMINS E [Concomitant]
  5. LIPITOR [Concomitant]
     Active Substance: ATORVASTATIN CALCIUM
  6. METOPROLOL. [Concomitant]
     Active Substance: METOPROLOL
  7. FISH OIL [Concomitant]
     Active Substance: FISH OIL
  8. HCTZ [Concomitant]
     Active Substance: HYDROCHLOROTHIAZIDE
  9. PRO?BIOTIC [Concomitant]
  10. ONE?A?DAY NOS [Concomitant]
     Active Substance: MINERALS\VITAMINS
  11. BAYER ASPIRIN LOW DOSE [Concomitant]
  12. POTASSIUM [Concomitant]
     Active Substance: POTASSIUM
  13. METOPROLOL SUCC 25MG (B?TOPROL XL [Suspect]
     Active Substance: METOPROLOL SUCCINATE
     Indication: ATRIAL FIBRILLATION
     Dosage: ?          QUANTITY:1 TABLET(S);?
     Route: 048
     Dates: start: 20170711, end: 20180710
  14. VITAMIN D3 [Concomitant]
     Active Substance: CHOLECALCIFEROL

REACTIONS (3)
  - Condition aggravated [None]
  - Drug hypersensitivity [None]
  - Blindness [None]

NARRATIVE: CASE EVENT DATE: 20171021
